FAERS Safety Report 23541891 (Version 1)
Quarter: 2024Q1

REPORT INFORMATION
  Report Type: Report from Study
  Country: US (occurrence: US)
  Receive Date: 20240220
  Receipt Date: 20240220
  Transmission Date: 20240410
  Serious: Yes (Death, Other)
  Sender: FDA-Public Use
  Company Number: US-UCBSA-2024008092

PATIENT
  Age: 64 Year
  Sex: Male

DRUGS (1)
  1. LEVETIRACETAM [Suspect]
     Active Substance: LEVETIRACETAM
     Indication: Seizure
     Dosage: 500 MG 3 TABLETS IN AM, 2 TABLETS AT PM
     Dates: end: 20240214

REACTIONS (6)
  - Cardiac failure [Fatal]
  - Surgery [Unknown]
  - Infection [Unknown]
  - Aortic valve disease [Unknown]
  - Aneurysm [Unknown]
  - Product use issue [Unknown]

NARRATIVE: CASE EVENT DATE: 20240214
